FAERS Safety Report 15342332 (Version 1)
Quarter: 2018Q3

REPORT INFORMATION
  Report Type: Spontaneous
  Country: BR (occurrence: BR)
  Receive Date: 20180902
  Receipt Date: 20180902
  Transmission Date: 20181010
  Serious: Yes (Other)
  Sender: FDA-Public Use
  Company Number: PHHY2018BR083586

PATIENT
  Sex: Male
  Weight: 35 kg

DRUGS (2)
  1. RITALINA [Suspect]
     Active Substance: METHYLPHENIDATE HYDROCHLORIDE
     Indication: ATTENTION DEFICIT/HYPERACTIVITY DISORDER
     Dosage: 10 MG, UNK  (HALF OF DRUG IN MORNING AND HALF OF DRUG IN AFTERNOON)
     Route: 048
  2. RITALIN LA [Suspect]
     Active Substance: METHYLPHENIDATE HYDROCHLORIDE
     Indication: PRODUCT USED FOR UNKNOWN INDICATION
     Route: 065

REACTIONS (9)
  - Wrong technique in product usage process [Unknown]
  - Feeling abnormal [Unknown]
  - Drug effect decreased [Unknown]
  - Apathy [Unknown]
  - Disturbance in attention [Unknown]
  - Hypersensitivity [Unknown]
  - Seizure [Unknown]
  - Congenital central nervous system anomaly [Unknown]
  - Agitation [Unknown]
